FAERS Safety Report 16411288 (Version 1)
Quarter: 2019Q2

REPORT INFORMATION
  Report Type: Spontaneous
  Country: US (occurrence: US)
  Receive Date: 20190610
  Receipt Date: 20190610
  Transmission Date: 20190711
  Serious: No
  Sender: FDA-Public Use
  Company Number: US-TEVA-2019-US-1055718

PATIENT
  Age: 44 Year
  Sex: Female

DRUGS (3)
  1. BUPIVACAINE. [Concomitant]
     Active Substance: BUPIVACAINE
     Route: 065
  2. LIDOCAINE. [Concomitant]
     Active Substance: LIDOCAINE
     Route: 065
  3. TRIAMCINOLONE [Suspect]
     Active Substance: TRIAMCINOLONE
     Indication: NEURALGIA
     Dosage: INJECTION OF 10 MG OF TRIAMCINOLONE IN A 3 ML SUSPENSION
     Route: 065

REACTIONS (2)
  - Skin hypopigmentation [Recovering/Resolving]
  - Injection site discolouration [Recovering/Resolving]
